FAERS Safety Report 7199426-5 (Version None)
Quarter: 2010Q4

REPORT INFORMATION
  Report Type: 
  Country: None (occurrence: None)
  Receive Date: 20101215
  Receipt Date: 20101209
  Transmission Date: 20110411
  Serious: Yes (Hospitalization, Disabling)
  Sender: FDA-Public Use
  Company Number: WAES 1011CAN00001

PATIENT
  Age: 58 Year
  Sex: Female

DRUGS (3)
  1. FOSAMAX [Suspect]
     Indication: OSTEOPOROSIS
     Dosage: 70 MG/WKY PO
     Route: 048
     Dates: start: 20000101
  2. DIOVAN HCT [Concomitant]
  3. PREDNISONE [Concomitant]

REACTIONS (1)
  - FEMUR FRACTURE [None]
